FAERS Safety Report 13614468 (Version 6)
Quarter: 2018Q2

REPORT INFORMATION
  Report Type: Report from Study
  Country: JP (occurrence: JP)
  Receive Date: 20170606
  Receipt Date: 20180604
  Transmission Date: 20180711
  Serious: Yes (Hospitalization, Other)
  Sender: FDA-Public Use
  Company Number: JP-BRISTOL-MYERS SQUIBB COMPANY-BMS-2017-048527

PATIENT
  Age: 73 Year
  Sex: Female

DRUGS (2)
  1. NIVOLUMAB [Suspect]
     Active Substance: NIVOLUMAB
     Indication: HODGKIN^S DISEASE
     Dosage: 3 MG/KG, UNK
     Route: 041
     Dates: start: 20160322, end: 20170911
  2. GLUCOSE [Suspect]
     Active Substance: DEXTROSE
     Indication: DECREASED APPETITE
     Route: 065

REACTIONS (13)
  - Infusion related reaction [Recovered/Resolved]
  - Blood glucose increased [Recovered/Resolved]
  - Decreased appetite [Recovered/Resolved]
  - Blood sodium decreased [Recovered/Resolved]
  - Atypical mycobacterial pneumonia [Recovering/Resolving]
  - Herpes zoster [Recovered/Resolved with Sequelae]
  - Blood creatinine decreased [Not Recovered/Not Resolved]
  - Immune thrombocytopenic purpura [Recovered/Resolved]
  - Myalgia [Recovered/Resolved]
  - Blood albumin decreased [Recovered/Resolved]
  - Arthralgia [Recovered/Resolved]
  - C-reactive protein increased [Recovered/Resolved]
  - Blood lactate dehydrogenase increased [Recovered/Resolved]

NARRATIVE: CASE EVENT DATE: 20170322
